FAERS Safety Report 21255562 (Version 1)
Quarter: 2022Q3

REPORT INFORMATION
  Report Type: Spontaneous
  Country: US (occurrence: US)
  Receive Date: 20220825
  Receipt Date: 20220825
  Transmission Date: 20221026
  Serious: No
  Sender: FDA-Public Use
  Company Number: US-ELI_LILLY_AND_COMPANY-US202208012594

PATIENT
  Age: 17 Year
  Sex: Female

DRUGS (1)
  1. TALTZ [Suspect]
     Active Substance: IXEKIZUMAB
     Indication: Ankylosing spondylitis
     Dosage: 80 MG, UNKNOWN
     Route: 058
     Dates: start: 202104

REACTIONS (5)
  - Fatigue [Not Recovered/Not Resolved]
  - Injection site pruritus [Unknown]
  - Injection site erythema [Unknown]
  - Injection site mass [Unknown]
  - Injection site pain [Unknown]

NARRATIVE: CASE EVENT DATE: 20210401
